FAERS Safety Report 11357396 (Version 1)
Quarter: 2015Q3

REPORT INFORMATION
  Report Type: Spontaneous
  Country: US (occurrence: US)
  Receive Date: 20150803
  Receipt Date: 20150803
  Transmission Date: 20151125
  Serious: No
  Sender: FDA-Public Use
  Company Number: US-ELI_LILLY_AND_COMPANY-US201205002506

PATIENT
  Sex: Male

DRUGS (7)
  1. NITROGLYCERIN. [Concomitant]
     Active Substance: NITROGLYCERIN
     Dosage: UNK, PRN
  2. LYSINE [Concomitant]
     Active Substance: LYSINE
  3. VITAMINS [Concomitant]
     Active Substance: VITAMINS
  4. ZYPREXA [Suspect]
     Active Substance: OLANZAPINE
     Dosage: UNK
     Dates: start: 20120305
  5. ZYPREXA [Suspect]
     Active Substance: OLANZAPINE
     Indication: AGGRESSION
     Dosage: UNK
     Dates: start: 20120229, end: 20120304
  6. VITAMIN C [Concomitant]
     Active Substance: ASCORBIC ACID
  7. LASIX [Concomitant]
     Active Substance: FUROSEMIDE

REACTIONS (13)
  - Communication disorder [Unknown]
  - Speech disorder [Unknown]
  - Skin abrasion [Unknown]
  - Dysstasia [Unknown]
  - Fluid intake reduced [Unknown]
  - Off label use [Recovered/Resolved]
  - Dehydration [Unknown]
  - Eating disorder [Unknown]
  - Posture abnormal [Unknown]
  - Injury [Unknown]
  - Muscular weakness [Unknown]
  - Weight decreased [Unknown]
  - Musculoskeletal disorder [Unknown]

NARRATIVE: CASE EVENT DATE: 20120229
